FAERS Safety Report 24715806 (Version 1)
Quarter: 2024Q4

REPORT INFORMATION
  Report Type: Spontaneous
  Country: CA (occurrence: CA)
  Receive Date: 20241210
  Receipt Date: 20241210
  Transmission Date: 20250114
  Serious: Yes (Other)
  Sender: SAMSUNG BIOEPIS
  Company Number: CA-SAMSUNG BIOEPIS-SB-2024-36818

PATIENT
  Age: 53 Year
  Sex: Female
  Weight: 65 kg

DRUGS (2)
  1. RENFLEXIS [Suspect]
     Active Substance: INFLIXIMAB-ABDA
     Indication: Behcet^s syndrome
     Dosage: POWDER FOR SOLUTION INTRAVENOUS.
     Route: 042
  2. RENFLEXIS [Suspect]
     Active Substance: INFLIXIMAB-ABDA
     Indication: Eye disorder

REACTIONS (8)
  - Abdominal pain upper [Recovered/Resolved]
  - Arthralgia [Recovered/Resolved]
  - Headache [Recovered/Resolved]
  - Mouth ulceration [Recovered/Resolved]
  - Palpitations [Recovered/Resolved]
  - Photosensitivity reaction [Recovered/Resolved]
  - Rash [Recovered/Resolved]
  - Off label use [Unknown]
